FAERS Safety Report 10412521 (Version 1)
Quarter: 2014Q3

REPORT INFORMATION
  Report Type: Spontaneous
  Country: JP (occurrence: JP)
  Receive Date: 20140827
  Receipt Date: 20140827
  Transmission Date: 20150326
  Serious: Yes (Death, Other)
  Sender: FDA-Public Use
  Company Number: JP-OTSUKA-JP-2014-17068

PATIENT

DRUGS (4)
  1. LASIX P [Concomitant]
     Indication: ASCITES
     Dosage: 20 MG MILLIGRAM(S), DAILY DOSE
     Route: 065
     Dates: start: 20140725
  2. SAMSCA [Suspect]
     Active Substance: TOLVAPTAN
     Indication: CIRRHOSIS ALCOHOLIC
     Dosage: 7.5 MG MILLIGRAM(S), DAILY DOSE
     Route: 048
     Dates: start: 20140729, end: 20140812
  3. LASIX M [Suspect]
     Active Substance: FUROSEMIDE
     Indication: ASCITES
     Dosage: 40 MG MILLIGRAM(S), DAILY DOSE
     Route: 048
     Dates: start: 20140729
  4. ALDACTONE [Suspect]
     Active Substance: SPIRONOLACTONE
     Indication: ASCITES
     Dosage: 75 MG MILLIGRAM(S), DAILY DOSE
     Route: 048
     Dates: start: 20140729

REACTIONS (2)
  - Blood bilirubin increased [Unknown]
  - Renal failure acute [Fatal]

NARRATIVE: CASE EVENT DATE: 20140810
